FAERS Safety Report 9680015 (Version 2)
Quarter: 2014Q1

REPORT INFORMATION
  Report Type: Spontaneous
  Country: JP (occurrence: JP)
  Receive Date: 20131110
  Receipt Date: 20140120
  Transmission Date: 20141002
  Serious: Yes (Disabling)
  Sender: FDA-Public Use
  Company Number: JP-AMGEN-JPNSP2013078292

PATIENT
  Age: 63 Year
  Sex: Female
  Weight: 50 kg

DRUGS (6)
  1. VECTIBIX [Suspect]
     Indication: COLON CANCER
     Dosage: 300 MG, Q3WK
     Route: 041
     Dates: start: 20110329, end: 20110609
  2. VECTIBIX [Suspect]
     Dosage: 300 MG, Q4WK
     Route: 041
     Dates: start: 20110708, end: 20110812
  3. 5 FU [Concomitant]
     Indication: COLON CANCER
     Dosage: 3600 MG, Q3WK
     Route: 041
     Dates: start: 20110329, end: 20110609
  4. 5 FU [Concomitant]
     Dosage: 3600 MG, Q4WK
     Route: 041
     Dates: start: 20110708, end: 20110812
  5. LEVOFOLINATE [Concomitant]
     Indication: COLON CANCER
     Dosage: 300 MG, Q3WK
     Route: 041
     Dates: start: 20110329, end: 20110609
  6. LEVOFOLINATE [Concomitant]
     Dosage: 300 MG, Q4WK
     Route: 041
     Dates: start: 20110708, end: 20110812

REACTIONS (1)
  - Neutropenia [Recovered/Resolved]
